FAERS Safety Report 4440785-1 (Version None)
Quarter: 2004Q3

REPORT INFORMATION
  Report Type: 
  Country: None (occurrence: None)
  Receive Date: 20040903
  Receipt Date: 20040831
  Transmission Date: 20050211
  Serious: Yes (Death)
  Sender: FDA-Public Use
  Company Number: US-JNJFOC-20040801550

PATIENT
  Sex: Female

DRUGS (13)
  1. RISPERDAL [Suspect]
     Indication: OBSESSIVE-COMPULSIVE DISORDER
     Route: 049
  2. PAXIL [Concomitant]
  3. ALBUTEROL [Concomitant]
  4. LIPITOR [Concomitant]
  5. TYLENOL [Concomitant]
  6. ASPIRIN [Concomitant]
  7. ATENOLOL [Concomitant]
  8. SUBLINGUAL NITROGLYCERIN [Concomitant]
  9. SUBLINGUAL NITROGLYCERIN [Concomitant]
  10. SUBLINGUAL NITROGLYCERIN [Concomitant]
  11. SUBLINGUAL NITROGLYCERIN [Concomitant]
  12. SUBLINGUAL NITROGLYCERIN [Concomitant]
  13. DETROL LA [Concomitant]

REACTIONS (1)
  - MYOCARDIAL INFARCTION [None]
